FAERS Safety Report 5199035-3 (Version None)
Quarter: 2006Q4

REPORT INFORMATION
  Report Type: 
  Country: None (occurrence: None)
  Receive Date: 20060919
  Receipt Date: 20060609
  Transmission Date: 20070319
  Serious: No
  Sender: FDA-Public Use
  Company Number: 2006US000963

PATIENT
  Age: 66 Year
  Sex: Female

DRUGS (4)
  1. VESICARE [Suspect]
     Indication: URINARY INCONTINENCE
     Dosage: 5 MG, ORAL
     Route: 048
     Dates: start: 20060301
  2. TOPROL-XL [Concomitant]
  3. DOXAZOSIN (DOXAZOSIN) [Concomitant]
  4. NORVASC [Concomitant]

REACTIONS (1)
  - DRUG INEFFECTIVE [None]
